FAERS Safety Report 26170565 (Version 1)
Quarter: 2025Q4

REPORT INFORMATION
  Report Type: Spontaneous
  Country: US (occurrence: US)
  Receive Date: 20251217
  Receipt Date: 20251217
  Transmission Date: 20260117
  Serious: No
  Sender: LUNDBECK
  Company Number: US-LUNDBECK-DKLU4022240

PATIENT
  Age: 23 Year
  Sex: Female
  Weight: 111.1 kg

DRUGS (1)
  1. VYEPTI [Suspect]
     Active Substance: EPTINEZUMAB-JJMR
     Indication: Product used for unknown indication
     Dosage: 300 MILLIGRAM
     Route: 041
     Dates: start: 20251124

REACTIONS (4)
  - Chest discomfort [Unknown]
  - Nasal congestion [Unknown]
  - Flushing [Unknown]
  - Throat irritation [Unknown]

NARRATIVE: CASE EVENT DATE: 20251124
